FAERS Safety Report 20157834 (Version 4)
Quarter: 2022Q3

REPORT INFORMATION
  Report Type: Report from Study
  Country: CN (occurrence: None)
  Receive Date: 20211207
  Receipt Date: 20220819
  Transmission Date: 20221027
  Serious: Yes (Hospitalization)
  Sender: FDA-Public Use
  Company Number: 2021A834141

PATIENT
  Age: 71 Year
  Sex: Male

DRUGS (65)
  1. DURVALUMAB [Suspect]
     Active Substance: DURVALUMAB
     Indication: Oesophageal squamous cell carcinoma
     Route: 042
     Dates: start: 20211027, end: 20211027
  2. DURVALUMAB [Suspect]
     Active Substance: DURVALUMAB
     Indication: Oesophageal squamous cell carcinoma
     Route: 042
     Dates: start: 20211209, end: 20211209
  3. CISPLATIN [Suspect]
     Active Substance: CISPLATIN
     Indication: Oesophageal squamous cell carcinoma
     Route: 065
     Dates: start: 20211027, end: 20211027
  4. CISPLATIN [Suspect]
     Active Substance: CISPLATIN
     Indication: Oesophageal squamous cell carcinoma
     Route: 065
     Dates: start: 20211104, end: 20211104
  5. CISPLATIN [Suspect]
     Active Substance: CISPLATIN
     Indication: Oesophageal squamous cell carcinoma
     Route: 065
     Dates: start: 20211111, end: 20211111
  6. CISPLATIN [Suspect]
     Active Substance: CISPLATIN
     Indication: Oesophageal squamous cell carcinoma
     Route: 065
     Dates: start: 20211118, end: 20211118
  7. CAPECITABINE [Suspect]
     Active Substance: CAPECITABINE
     Indication: Oesophageal squamous cell carcinoma
     Route: 065
     Dates: start: 20211028, end: 20211029
  8. CAPECITABINE [Suspect]
     Active Substance: CAPECITABINE
     Indication: Oesophageal squamous cell carcinoma
     Route: 065
     Dates: start: 20211101, end: 20211105
  9. CAPECITABINE [Suspect]
     Active Substance: CAPECITABINE
     Indication: Oesophageal squamous cell carcinoma
     Route: 065
     Dates: start: 20211108, end: 20211112
  10. CAPECITABINE [Suspect]
     Active Substance: CAPECITABINE
     Indication: Oesophageal squamous cell carcinoma
     Route: 065
     Dates: start: 20211115, end: 20211119
  11. CAPECITABINE [Suspect]
     Active Substance: CAPECITABINE
     Indication: Oesophageal squamous cell carcinoma
     Route: 065
     Dates: start: 20211122, end: 20211125
  12. OMEPRAZOLE [Concomitant]
     Active Substance: OMEPRAZOLE
     Indication: Protein total
     Dosage: 40.0MG ONCE/SINGLE ADMINISTRATION
     Route: 042
     Dates: start: 20211027, end: 20211027
  13. DORASETRON MESYLATE INJECTION [Concomitant]
     Indication: Nausea
     Dosage: 100.0MG ONCE/SINGLE ADMINISTRATION
     Route: 042
     Dates: start: 20211027, end: 20211027
  14. DORASETRON MESYLATE INJECTION [Concomitant]
     Indication: Nausea
     Dosage: 100.0MG ONCE/SINGLE ADMINISTRATION
     Route: 042
     Dates: start: 20211104, end: 20211104
  15. MULTIVITAMIN FOR INJECTION [Concomitant]
     Indication: Hypervolaemia
     Dosage: 1.0 BRANCH ONCE/SINGLE ADMINISTRATION
     Route: 042
     Dates: start: 20211027, end: 20211027
  16. COMPOUND DIGESTIVE ENZYME CAPSULE [Concomitant]
     Indication: Job change
     Dosage: 1.0 GRAIN THREE TIMES A DAY
     Route: 048
     Dates: start: 20211108, end: 20211108
  17. CIMETIDINE INJECTION [Concomitant]
     Indication: Protein total
     Dosage: 0.4G ONCE/SINGLE ADMINISTRATION
     Route: 042
     Dates: start: 20211108, end: 20211108
  18. CALF SERUM DEPROTEINIZED INJECTION [Concomitant]
     Indication: Protein total
     Dosage: 0.4G ONCE/SINGLE ADMINISTRATION
     Route: 042
     Dates: start: 20211108, end: 20211108
  19. IODOXANOL INJECTION [Concomitant]
     Indication: Radiotherapy
     Dosage: 100.0ML ONCE/SINGLE ADMINISTRATION
     Route: 042
     Dates: start: 20211018, end: 20211018
  20. IODOXANOL INJECTION [Concomitant]
     Indication: Muscle contracture
     Dosage: 100.0ML ONCE/SINGLE ADMINISTRATION
     Route: 042
     Dates: start: 20211018, end: 20211018
  21. IODOXANOL INJECTION [Concomitant]
     Indication: Radiotherapy
     Dosage: 100.0ML ONCE/SINGLE ADMINISTRATION
     Route: 042
     Dates: start: 20211026, end: 20211026
  22. IODOXANOL INJECTION [Concomitant]
     Indication: Muscle contracture
     Dosage: 100.0ML ONCE/SINGLE ADMINISTRATION
     Route: 042
     Dates: start: 20211026, end: 20211026
  23. GADOLINIUM DIAMINE INJECTION [Concomitant]
     Indication: Radiotherapy
     Dosage: 574.0MG ONCE/SINGLE ADMINISTRATION
     Route: 042
     Dates: start: 20211016, end: 20211016
  24. GADOLINIUM DIAMINE INJECTION [Concomitant]
     Indication: Muscle contracture
     Dosage: 574.0MG ONCE/SINGLE ADMINISTRATION
     Route: 042
     Dates: start: 20211016, end: 20211016
  25. GADOLINIUM DIAMINE INJECTION [Concomitant]
     Indication: Radiotherapy
     Dosage: 574.0G ONCE/SINGLE ADMINISTRATION
     Route: 042
     Dates: start: 20211015, end: 20211015
  26. GADOLINIUM DIAMINE INJECTION [Concomitant]
     Indication: Muscle contracture
     Dosage: 574.0G ONCE/SINGLE ADMINISTRATION
     Route: 042
     Dates: start: 20211015, end: 20211015
  27. ALUMINUM MAGNESIUM AND SUSPENSION [Concomitant]
     Indication: Gastritis
     Dosage: 1.5G ONCE/SINGLE ADMINISTRATION
     Route: 048
     Dates: start: 20211022, end: 20211022
  28. FORSAPITAN DIMEGLUMINE FOR INJECTION [Concomitant]
     Indication: Vomiting
     Dosage: 150.0MG ONCE/SINGLE ADMINISTRATION
     Route: 042
     Dates: start: 20211027, end: 20211027
  29. FORSAPITAN DIMEGLUMINE FOR INJECTION [Concomitant]
     Indication: Vomiting
     Dosage: 150.0MG ONCE/SINGLE ADMINISTRATION
     Route: 042
     Dates: start: 20211104, end: 20211104
  30. LIDOCAINE HYDROCHLORIDE [Concomitant]
     Active Substance: LIDOCAINE HYDROCHLORIDE
     Indication: Local anaesthesia
     Dosage: 0.1G ONCE/SINGLE ADMINISTRATION
     Route: 058
     Dates: start: 20211027, end: 20211027
  31. POVIDONE IODINE SOLUTION [Concomitant]
     Indication: Disinhibition
     Dosage: 110.0ML ONCE/SINGLE ADMINISTRATION
     Route: 067
     Dates: start: 20211027, end: 20211027
  32. POVIDONE IODINE SOLUTION [Concomitant]
     Indication: Disinhibition
     Dosage: 110.0ML ONCE/SINGLE ADMINISTRATION
     Route: 067
     Dates: start: 20211104, end: 20211104
  33. GLYCERINI ENEMA [Concomitant]
     Indication: Obstructive defaecation
     Dosage: 40.0ML ONCE/SINGLE ADMINISTRATION
     Route: 054
     Dates: start: 20211108, end: 20211108
  34. CAFFEIC ACID PIECE [Concomitant]
     Indication: White blood cell count
     Route: 065
     Dates: start: 20211114
  35. CAFFEIC ACID PIECE [Concomitant]
     Indication: Myelosuppression
     Route: 065
     Dates: start: 20211114
  36. CAFFEIC ACID PIECE [Concomitant]
     Indication: White blood cell count
     Route: 065
     Dates: start: 20211114, end: 20211224
  37. CAFFEIC ACID PIECE [Concomitant]
     Indication: Myelosuppression
     Route: 065
     Dates: start: 20211114, end: 20211224
  38. BETAMETHASONE SODIUM PHOSPHATE FOR INJECTION [Concomitant]
     Indication: Inflammation
     Route: 065
     Dates: start: 20211115, end: 20211115
  39. KANGFUXIN LIQUID [Concomitant]
     Indication: Protein total
     Route: 065
     Dates: start: 20211117, end: 20211117
  40. CEFDINIR [Concomitant]
     Active Substance: CEFDINIR
     Indication: Pyrexia
     Route: 065
     Dates: start: 20211123, end: 20211126
  41. PIPERACILLIN SODIUM\SULBACTAM SODIUM [Concomitant]
     Active Substance: PIPERACILLIN SODIUM\SULBACTAM SODIUM
     Indication: Pyrexia
     Route: 065
     Dates: start: 20211206, end: 20211218
  42. LEVOFLOXACIN HEMIHYDRATE [Concomitant]
     Active Substance: LEVOFLOXACIN
     Indication: Pyrexia
     Route: 065
     Dates: start: 20211218, end: 20211224
  43. HUMAN IMMUNOGLOBULIN G [Concomitant]
     Active Substance: HUMAN IMMUNOGLOBULIN G
     Indication: Pyrexia
     Route: 065
     Dates: start: 20211218, end: 20211218
  44. HUMAN IMMUNOGLOBULIN G [Concomitant]
     Active Substance: HUMAN IMMUNOGLOBULIN G
     Indication: Pyrexia
     Route: 065
     Dates: start: 20211219, end: 20211219
  45. CAFFEIC ACID TABLETS [Concomitant]
     Indication: Myelosuppression
     Route: 065
     Dates: start: 20211224, end: 20220106
  46. ENTERAL NUTRITIONAL POWDER [Concomitant]
     Indication: Nutritional supplementation
     Route: 065
     Dates: start: 20211224, end: 20211230
  47. LEVOFLOXACIN LACTATE TABLETS [Concomitant]
     Indication: Inflammation
     Route: 065
     Dates: start: 20211224, end: 20211230
  48. METHYLPREDNISOLONE [Concomitant]
     Active Substance: METHYLPREDNISOLONE
     Indication: Inflammation
     Route: 065
     Dates: start: 20211224, end: 20220106
  49. HYDROTALCITE TABLETS [Concomitant]
     Indication: Protein total
     Route: 065
     Dates: start: 20211224, end: 20220106
  50. POTASSIUM CHLORIDE GRANULES [Concomitant]
     Indication: Blood potassium increased
     Route: 065
     Dates: start: 20211208, end: 20211216
  51. HUMAN CELL RECOMBINANT STIMULATOR INJECTION [Concomitant]
     Indication: Myelosuppression
     Route: 065
     Dates: start: 20211110, end: 20211110
  52. HUMAN GRANULOCYTE-STIMULATI NG FACTOR INJECTION [Concomitant]
     Indication: Myelosuppression
     Route: 065
     Dates: start: 20211117, end: 20211117
  53. HUMAN GRANULOCYTE-STIMULATI NG FACTOR INJECTION [Concomitant]
     Indication: Myelosuppression
     Route: 065
     Dates: start: 20211123, end: 20211123
  54. HUMAN GRANULOCYTE-STIMULATI NG FACTOR INJECTION [Concomitant]
     Indication: Myelosuppression
     Route: 065
     Dates: start: 20211129, end: 20211129
  55. HUMAN GRANULOCYTE-STIMULATI NG FACTOR INJECTION [Concomitant]
     Indication: Myelosuppression
     Route: 065
     Dates: start: 20211202, end: 20211202
  56. HUMAN GRANULOCYTE-STIMULATI NG FACTOR INJECTION [Concomitant]
     Indication: Myelosuppression
     Route: 065
     Dates: start: 20211206, end: 20211206
  57. HUMAN GRANULOCYTE-STIMULATI NG FACTOR INJECTION [Concomitant]
     Indication: Myelosuppression
     Route: 065
     Dates: start: 20211207, end: 20211207
  58. HUMAN GRANULOCYTE-STIMULATI NG FACTOR INJECTION [Concomitant]
     Indication: Myelosuppression
     Route: 065
     Dates: start: 20211208, end: 20211208
  59. HUMAN GRANULOCYTE-STIMULATI NG FACTOR INJECTION [Concomitant]
     Indication: Myelosuppression
     Route: 065
     Dates: start: 20211210, end: 20211213
  60. HUMAN GRANULOCYTE-STIMULATI NG FACTOR INJECTION [Concomitant]
     Indication: Myelosuppression
     Route: 065
     Dates: start: 20211213, end: 20211223
  61. OPRELVEKIN [Concomitant]
     Active Substance: OPRELVEKIN
     Indication: Myelosuppression
     Route: 065
     Dates: start: 20211124, end: 20211202
  62. OPRELVEKIN [Concomitant]
     Active Substance: OPRELVEKIN
     Indication: Myelosuppression
     Route: 065
     Dates: start: 20211202, end: 20211206
  63. UBENEMEX CAPSULES [Concomitant]
     Indication: Myelosuppression
     Route: 065
     Dates: start: 20211126, end: 20211210
  64. RECOMBINANT HUMAN THROMBOPLASTIN INJECTION [Concomitant]
     Indication: Myelosuppression
     Route: 065
     Dates: start: 20211206, end: 20211224
  65. HUMAN ERYTHROPOIETIN INJECTION [Concomitant]
     Indication: Myelosuppression
     Dosage: 36000.0 UNIT ONCE/SINGLE ADMINISTRATION
     Route: 065
     Dates: start: 20211215, end: 20211215

REACTIONS (1)
  - Myelosuppression [Recovered/Resolved]

NARRATIVE: CASE EVENT DATE: 20211109
